FAERS Safety Report 9844798 (Version 2)
Quarter: 2014Q3

REPORT INFORMATION
  Report Type: Spontaneous
  Country: US (occurrence: None)
  Receive Date: 20140122
  Receipt Date: 20140905
  Transmission Date: 20150326
  Serious: Yes (Other)
  Sender: FDA-Public Use
  Company Number: 2014-US-000292

PATIENT
  Age: 43 Year
  Sex: Female
  Weight: 56.7 kg

DRUGS (4)
  1. XYREM [Suspect]
     Active Substance: SODIUM OXYBATE
     Indication: NARCOLEPSY
     Route: 048
     Dates: start: 200608
  2. VITAMIN B12 (COBAMAMIDE) [Concomitant]
  3. MONODOX (ALBENDAZOLE) [Concomitant]
  4. ADDERALL (AMFETAMINE ASPARTATE, AMFETAMINE SULFATE, DEXAMFETAMINE SACCHARATE, DEXAMFETAMINE SULFATE) [Concomitant]

REACTIONS (1)
  - Colon cancer [None]

NARRATIVE: CASE EVENT DATE: 2012
